FAERS Safety Report 9893553 (Version 1)
Quarter: 2014Q1

REPORT INFORMATION
  Report Type: Spontaneous
  Country: DE (occurrence: DE)
  Receive Date: 20140213
  Receipt Date: 20140213
  Transmission Date: 20141002
  Serious: Yes (Death, Life-Threatening, Other)
  Sender: FDA-Public Use
  Company Number: DE-AMGEN-DEUSP2014009126

PATIENT
  Age: 71 Year
  Sex: Female
  Weight: 87.8 kg

DRUGS (9)
  1. XGEVA [Suspect]
     Indication: BREAST CANCER METASTATIC
     Dosage: 120 MG, Q4WK
     Route: 058
     Dates: start: 20110922
  2. ABRAXANE /01116001/ [Suspect]
     Indication: BREAST CANCER
     Dosage: 100 MG/ M2, 3 IN 28 DAYS
     Route: 065
     Dates: start: 20131121, end: 20131121
  3. AVASTIN /01555201/ [Suspect]
     Indication: BREAST CANCER
     Dosage: 15 MG/KG, Q3WK
     Route: 065
     Dates: start: 20131121, end: 20131121
  4. NEULASTA [Concomitant]
     Indication: PROPHYLAXIS
  5. EMEND                              /01627301/ [Concomitant]
     Indication: PREMEDICATION
  6. DEXAMETHASONE [Concomitant]
  7. KEVATRIL [Concomitant]
  8. NACL [Concomitant]
  9. LINOLA [Concomitant]

REACTIONS (17)
  - Coma hepatic [Not Recovered/Not Resolved]
  - Malignant neoplasm progression [Fatal]
  - General physical health deterioration [Not Recovered/Not Resolved]
  - Depressed level of consciousness [Unknown]
  - Leukopenia [Unknown]
  - Ascites [Unknown]
  - Skin necrosis [Unknown]
  - Dermatitis [Unknown]
  - Chills [Unknown]
  - Oedema peripheral [Unknown]
  - Dysphonia [Unknown]
  - Skin discolouration [Unknown]
  - Pyrexia [Unknown]
  - Mucosal inflammation [Unknown]
  - Speech disorder [Unknown]
  - Dyspnoea exertional [Unknown]
  - Pruritus [Unknown]
